FAERS Safety Report 10073009 (Version 1)
Quarter: 2014Q2

REPORT INFORMATION
  Report Type: Spontaneous
  Country: JP (occurrence: JP)
  Receive Date: 20140411
  Receipt Date: 20140411
  Transmission Date: 20141212
  Serious: Yes (Disabling)
  Sender: FDA-Public Use
  Company Number: JP-B.I. PHARMACEUTICALS,INC./RIDGEFIELD-2014-BI-15894NB

PATIENT
  Age: 66 Year
  Sex: Male

DRUGS (5)
  1. PRAZAXA [Suspect]
     Indication: PRODUCT USED FOR UNKNOWN INDICATION
     Dosage: 220 MG
     Route: 048
  2. NIFEDIPINE CR [Concomitant]
     Dosage: 40 MG
     Route: 048
  3. TENORMIN [Concomitant]
     Dosage: 50 MG
     Route: 048
  4. BLOPRESS [Concomitant]
     Dosage: 8 MG
     Route: 048
  5. ENALAPRIL MALEATE [Concomitant]
     Dosage: 2.5 MG
     Route: 048

REACTIONS (2)
  - Embolic stroke [Recovered/Resolved with Sequelae]
  - Haemorrhagic stroke [Recovered/Resolved with Sequelae]
